FAERS Safety Report 24814795 (Version 1)
Quarter: 2025Q1

REPORT INFORMATION
  Report Type: Spontaneous
  Country: US (occurrence: US)
  Receive Date: 20250107
  Receipt Date: 20250107
  Transmission Date: 20250408
  Serious: Yes (Other)
  Sender: CIPLA
  Company Number: US-MLMSERVICE-20241226-PI323940-00120-1

PATIENT

DRUGS (1)
  1. DICLOFENAC [Suspect]
     Active Substance: DICLOFENAC
     Indication: Product used for unknown indication
     Dosage: 50 MILLIGRAM, BID (EVERY 12 HOURS/TWICE A DAY)
     Route: 065

REACTIONS (1)
  - Large intestinal stenosis [Recovering/Resolving]
